FAERS Safety Report 8472513-7 (Version None)
Quarter: 2012Q2

REPORT INFORMATION
  Report Type: 
  Country: None (occurrence: None)
  Receive Date: 20120622
  Receipt Date: 20120622
  Transmission Date: 20120825
  Serious: Yes (Other)
  Sender: FDA-Public Use
  Company Number: None

PATIENT
  Age: 87 Year
  Sex: Female

DRUGS (1)
  1. SUTENT [Suspect]
     Indication: RENAL CANCER
     Dosage: 50MG 4 WKS ON, 2 WKS OFF PO
     Route: 048
     Dates: start: 20120301

REACTIONS (3)
  - DRY SKIN [None]
  - NEUROPATHY PERIPHERAL [None]
  - FATIGUE [None]
